FAERS Safety Report 23100578 (Version 1)
Quarter: 2023Q4

REPORT INFORMATION
  Report Type: Spontaneous
  Country: CA (occurrence: CA)
  Receive Date: 20231024
  Receipt Date: 20231024
  Transmission Date: 20240109
  Serious: Yes (Other)
  Sender: FDA-Public Use
  Company Number: CA-PFIZER INC-202200425782

PATIENT
  Age: 63 Year
  Sex: Male

DRUGS (5)
  1. RUXIENCE [Suspect]
     Active Substance: RITUXIMAB-PVVR
     Indication: Granulomatosis with polyangiitis
     Dosage: 500 MG, 2 DOSES EVERY 6 MONTHS
     Route: 042
     Dates: start: 20220428, end: 20220428
  2. RUXIENCE [Suspect]
     Active Substance: RITUXIMAB-PVVR
     Indication: Microscopic polyangiitis
     Dosage: 500 MG, 2 DOSES EVERY 6 MONTHS
     Route: 042
     Dates: start: 20221115, end: 20221115
  3. RUXIENCE [Suspect]
     Active Substance: RITUXIMAB-PVVR
     Dosage: 500 MG, 2 DOSES EVERY 6 MONTHS
     Route: 042
     Dates: start: 20220428, end: 20221115
  4. RUXIENCE [Suspect]
     Active Substance: RITUXIMAB-PVVR
     Dosage: 500 MG, EVERY 6 MONTHS
     Route: 042
     Dates: start: 20230515
  5. RUXIENCE [Suspect]
     Active Substance: RITUXIMAB-PVVR
     Dosage: 500 MG AFTER 22 WEEKS
     Route: 042
     Dates: start: 20231018

REACTIONS (5)
  - Diabetes mellitus [Not Recovered/Not Resolved]
  - Off label use [Unknown]
  - Off label use [Unknown]
  - Intentional product use issue [Unknown]
  - Inappropriate schedule of product administration [Unknown]

NARRATIVE: CASE EVENT DATE: 20220428
